FAERS Safety Report 8168406-5 (Version None)
Quarter: 2012Q1

REPORT INFORMATION
  Report Type: 
  Country: None (occurrence: None)
  Receive Date: 20120227
  Receipt Date: 20120216
  Transmission Date: 20120608
  Serious: Yes (Hospitalization)
  Sender: FDA-Public Use
  Company Number: US-CELGENEUS-163-20785-12021987

PATIENT
  Sex: Male
  Weight: 68.1 kg

DRUGS (8)
  1. THALOMID [Suspect]
     Indication: MULTIPLE MYELOMA
     Dosage: 100 MILLIGRAM
     Route: 048
     Dates: start: 20100801
  2. NORVASC [Concomitant]
     Dosage: 10 MILLIGRAM
     Route: 065
  3. METOPROLOL [Concomitant]
     Dosage: 25 MILLIGRAM
     Route: 065
  4. VELCADE [Concomitant]
     Dosage: 25 MILLIGRAM
     Route: 065
  5. WELLBUTRIN [Concomitant]
     Indication: DEPRESSION
     Dosage: 150 MILLIGRAM
     Route: 065
  6. ALPRAZOLAM [Concomitant]
     Indication: ANXIETY
     Dosage: .5 MILLIGRAM
     Route: 065
  7. MELPHALAN HYDROCHLORIDE [Suspect]
     Dosage: 25 MILLIGRAM
     Route: 065
  8. HYGROTON [Concomitant]
     Indication: HYPERTENSION
     Dosage: 25 MILLIGRAM
     Route: 065

REACTIONS (3)
  - AZOTAEMIA [None]
  - RASH [None]
  - HYPERCALCAEMIA [None]
